FAERS Safety Report 12692794 (Version 2)
Quarter: 2016Q4

REPORT INFORMATION
  Report Type: Spontaneous
  Country: ES (occurrence: ES)
  Receive Date: 20160829
  Receipt Date: 20161018
  Transmission Date: 20170207
  Serious: Yes (Hospitalization)
  Sender: FDA-Public Use
  Company Number: ES-PFIZER INC-2016312608

PATIENT
  Age: 69 Year
  Sex: Male

DRUGS (3)
  1. SUTENT [Suspect]
     Active Substance: SUNITINIB MALATE
     Indication: RENAL CANCER
     Dosage: 50 MG, 4 WEEKS ON/ 2 WEEKS OFF
     Route: 048
     Dates: start: 20160405, end: 20160614
  2. PANTOPRAZOLE [Concomitant]
     Active Substance: PANTOPRAZOLE SODIUM
     Dosage: 40 MG, DAILY
  3. SUTENT [Suspect]
     Active Substance: SUNITINIB MALATE
     Dosage: 37.5 MG, 2 WEEKS ON/ 1 WEEK OFF
     Route: 048
     Dates: start: 20160806, end: 20160819

REACTIONS (4)
  - Anaemia [Unknown]
  - Dermatitis [Recovered/Resolved]
  - Hypercalcaemia [Recovered/Resolved]
  - Constipation [Unknown]

NARRATIVE: CASE EVENT DATE: 2016
